FAERS Safety Report 11448181 (Version 1)
Quarter: 2015Q3

REPORT INFORMATION
  Report Type: Spontaneous
  Country: US (occurrence: US)
  Receive Date: 20150831
  Receipt Date: 20150831
  Transmission Date: 20151125
  Serious: No
  Sender: FDA-Public Use
  Company Number: US-ELI_LILLY_AND_COMPANY-US200906002766

PATIENT
  Age: 37 Year
  Sex: Female

DRUGS (3)
  1. CYMBALTA [Suspect]
     Active Substance: DULOXETINE HYDROCHLORIDE
     Dosage: 60 MG, UNK
  2. CYMBALTA [Suspect]
     Active Substance: DULOXETINE HYDROCHLORIDE
     Indication: FIBROMYALGIA
     Dosage: 30 MG, UNK
     Dates: start: 200904
  3. NEURONTIN [Concomitant]
     Active Substance: GABAPENTIN

REACTIONS (4)
  - Hyperthermia [Not Recovered/Not Resolved]
  - Flushing [Not Recovered/Not Resolved]
  - Dry mouth [Recovered/Resolved]
  - Abnormal dreams [Recovered/Resolved]
